FAERS Safety Report 14671296 (Version 3)
Quarter: 2018Q2

REPORT INFORMATION
  Report Type: Spontaneous
  Country: US (occurrence: US)
  Receive Date: 20180323
  Receipt Date: 20180430
  Transmission Date: 20180711
  Serious: Yes (Other)
  Sender: FDA-Public Use
  Company Number: US-BEH-2018088883

PATIENT
  Age: 50 Year
  Sex: Male
  Weight: 77.1 kg

DRUGS (6)
  1. RIASTAP [Suspect]
     Active Substance: FIBRINOGEN HUMAN
     Indication: HYPOFIBRINOGENAEMIA
     Dosage: 2 G, UNK
     Route: 042
  2. RIASTAP [Suspect]
     Active Substance: FIBRINOGEN HUMAN
     Dosage: 4 G, UNK
     Route: 042
  3. RIASTAP [Suspect]
     Active Substance: FIBRINOGEN HUMAN
     Dosage: UNK
     Route: 042
  4. RIASTAP [Suspect]
     Active Substance: FIBRINOGEN HUMAN
     Indication: FACTOR I DEFICIENCY
     Dosage: 7 G, UNK
     Route: 042
     Dates: start: 20180210
  5. RIASTAP [Suspect]
     Active Substance: FIBRINOGEN HUMAN
     Dosage: 8 G, UNK
     Route: 042
     Dates: end: 20180313
  6. RIASTAP [Suspect]
     Active Substance: FIBRINOGEN HUMAN
     Dosage: 6 G, UNK
     Route: 042

REACTIONS (1)
  - Drug ineffective [Recovered/Resolved]
